FAERS Safety Report 5135753-0 (Version None)
Quarter: 2006Q4

REPORT INFORMATION
  Report Type: 
  Country: None (occurrence: None)
  Receive Date: 20061020
  Receipt Date: 20061006
  Transmission Date: 20070319
  Serious: Yes (Disabling)
  Sender: FDA-Public Use
  Company Number: CERZ-11339

PATIENT
  Age: 61 Year
  Sex: Female
  Weight: 45 kg

DRUGS (1)
  1. CEREZYME [Suspect]
     Indication: GAUCHER'S DISEASE
     Dosage: 67 U/KG Q2WKS IV
     Route: 042
     Dates: start: 19970409

REACTIONS (5)
  - COAGULOPATHY [None]
  - DEPRESSION [None]
  - DISEASE PROGRESSION [None]
  - HYPERTENSION [None]
  - PARKINSON'S DISEASE [None]
